FAERS Safety Report 8914815 (Version 1)
Quarter: 2012Q4

REPORT INFORMATION
  Report Type: 
  Country: DE (occurrence: DE)
  Receive Date: 20121119
  Receipt Date: 20121119
  Transmission Date: 20130627
  Serious: Yes (Death, Congenital Anomaly, Other)
  Sender: FDA-Public Use
  Company Number: DE-TEVA-368807GER

PATIENT
  Sex: Female
  Weight: 1.2 kg

DRUGS (1)
  1. RAMIPRIL [Suspect]
     Dosage: suspect medication was taken by the father
     Route: 065

REACTIONS (13)
  - Exomphalos [Fatal]
  - Meningocele [Fatal]
  - Cloacal exstrophy [Fatal]
  - Limb malformation [Fatal]
  - Congenital heart valve disorder [Unknown]
  - Pulmonary hypoplasia [Unknown]
  - Paternal drugs affecting foetus [None]
  - Abortion induced [None]
  - Foetal malpresentation [None]
  - Respiratory tract malformation [None]
  - Gastrointestinal malformation [None]
  - Urinary tract malformation [None]
  - Foetal death [None]
